FAERS Safety Report 14248321 (Version 2)
Quarter: 2017Q4

REPORT INFORMATION
  Report Type: Spontaneous
  Country: CZ (occurrence: CZ)
  Receive Date: 20171204
  Receipt Date: 20171229
  Transmission Date: 20180321
  Serious: Yes (Other)
  Sender: FDA-Public Use
  Company Number: CZ-TEVA-2017-CZ-827362

PATIENT
  Age: 72 Year
  Sex: Male

DRUGS (1)
  1. DOXYBENE [Suspect]
     Active Substance: DOXYCYCLINE
     Indication: BORRELIA INFECTION
     Route: 048
     Dates: start: 201708, end: 201708

REACTIONS (1)
  - Erysipelas [Recovered/Resolved]

NARRATIVE: CASE EVENT DATE: 201708
